FAERS Safety Report 25471682 (Version 1)
Quarter: 2025Q2

REPORT INFORMATION
  Report Type: Spontaneous
  Country: US (occurrence: US)
  Receive Date: 20250624
  Receipt Date: 20250624
  Transmission Date: 20250716
  Serious: No
  Sender: TOLMAR
  Company Number: US-Tolmar-TLM-2025-01961

PATIENT
  Age: 47 Year
  Sex: Female

DRUGS (3)
  1. ELIGARD [Suspect]
     Active Substance: LEUPROLIDE ACETATE
     Indication: Breast cancer
     Route: 065
  2. ELIGARD [Suspect]
     Active Substance: LEUPROLIDE ACETATE
     Route: 065
  3. DEVICE [Suspect]
     Active Substance: DEVICE
     Indication: Breast cancer

REACTIONS (3)
  - Product dispensing error [Unknown]
  - Off label use [Unknown]
  - Wrong technique in device usage process [Unknown]
